FAERS Safety Report 7286082-0 (Version None)
Quarter: 2011Q1

REPORT INFORMATION
  Report Type: 
  Country: None (occurrence: None)
  Receive Date: 20110210
  Receipt Date: 20110203
  Transmission Date: 20110831
  Serious: Yes (Hospitalization, Other)
  Sender: FDA-Public Use
  Company Number: FR-PFIZER INC-2009303282

PATIENT
  Age: 42 Year
  Sex: Male

DRUGS (6)
  1. CARDENSIEL [Concomitant]
     Dosage: UNK
     Dates: start: 19850101
  2. TRIATEC [Suspect]
     Dosage: UNK
     Route: 048
     Dates: start: 20070318, end: 20081024
  3. TAHOR [Suspect]
     Indication: DYSLIPIDAEMIA
     Dosage: UNK
     Route: 048
     Dates: start: 20070318, end: 20081024
  4. APROVEL [Concomitant]
  5. PLAVIX [Concomitant]
     Dosage: UNK
     Dates: start: 20070318, end: 20081024
  6. ASPIRIN [Concomitant]
     Dosage: UNK
     Dates: start: 20070318

REACTIONS (14)
  - MULTI-ORGAN FAILURE [None]
  - SHOCK HAEMORRHAGIC [None]
  - PYELONEPHRITIS [None]
  - STEATORRHOEA [None]
  - PANCREATITIS ACUTE [None]
  - DEHYDRATION [None]
  - FISTULA [None]
  - PANCREATIC CYST [None]
  - HYPOGLYCAEMIA [None]
  - TOXIC SHOCK SYNDROME [None]
  - RENAL COLIC [None]
  - BRADYCARDIA [None]
  - WOUND DEHISCENCE [None]
  - MALNUTRITION [None]
